FAERS Safety Report 10948803 (Version 1)
Quarter: 2015Q1

REPORT INFORMATION
  Report Type: Spontaneous
  Country: IT (occurrence: None)
  Receive Date: 20150320
  Receipt Date: 20150320
  Transmission Date: 20150721
  Serious: Yes (Other)
  Sender: FDA-Public Use
  Company Number: 2785261

PATIENT
  Age: 50 Year
  Sex: Female
  Weight: 87 kg

DRUGS (1)
  1. CARBOPLATIN. [Suspect]
     Active Substance: CARBOPLATIN
     Indication: OVARIAN CANCER
     Route: 042
     Dates: start: 20150226, end: 20150226

REACTIONS (2)
  - Erythema [None]
  - Dyspnoea [None]

NARRATIVE: CASE EVENT DATE: 20150226
